FAERS Safety Report 5877015-X (Version None)
Quarter: 2008Q3

REPORT INFORMATION
  Report Type: 
  Country: None (occurrence: None)
  Receive Date: 20080910
  Receipt Date: 20080902
  Transmission Date: 20090109
  Serious: Yes (Other)
  Sender: FDA-Public Use
  Company Number: PHHY2008GB14293

PATIENT

DRUGS (1)
  1. ALISKIREN [Suspect]
     Indication: HYPERTENSION

REACTIONS (4)
  - CELLULITIS [None]
  - MALAISE [None]
  - OEDEMA PERIPHERAL [None]
  - VENOUS INSUFFICIENCY [None]
